FAERS Safety Report 4821807-2 (Version None)
Quarter: 2005Q4

REPORT INFORMATION
  Report Type: 
  Country: None (occurrence: None)
  Receive Date: 20051103
  Receipt Date: 20051013
  Transmission Date: 20060501
  Serious: Yes (Hospitalization)
  Sender: FDA-Public Use
  Company Number: AU_050708750

PATIENT
  Age: 67 Year
  Sex: Female

DRUGS (2)
  1. ZYPREXA [Suspect]
     Indication: CATATONIA
     Dates: start: 19990101
  2. INSULIN [Concomitant]

REACTIONS (3)
  - CATATONIA [None]
  - DISEASE RECURRENCE [None]
  - THERAPY NON-RESPONDER [None]
